FAERS Safety Report 8112495-0 (Version None)
Quarter: 2012Q1

REPORT INFORMATION
  Report Type: 
  Country: None (occurrence: None)
  Receive Date: 20120203
  Receipt Date: 20120126
  Transmission Date: 20120608
  Serious: Yes (Other)
  Sender: FDA-Public Use
  Company Number: KR-JNJFOC-20120112311

PATIENT
  Sex: Male

DRUGS (2)
  1. TOPAMAX [Suspect]
     Dosage: 100 MG 3 TABLETS A DAY
     Route: 048
  2. TOPAMAX [Suspect]
     Indication: EPILEPSY
     Dosage: 100 MG 4 TABLETS A DAY
     Route: 048
     Dates: start: 20080101

REACTIONS (4)
  - SPEECH DISORDER [None]
  - TREMOR [None]
  - VISION BLURRED [None]
  - COGNITIVE DISORDER [None]
